FAERS Safety Report 4430280-8 (Version None)
Quarter: 2004Q3

REPORT INFORMATION
  Report Type: 
  Country: None (occurrence: None)
  Receive Date: 20040817
  Receipt Date: 20040804
  Transmission Date: 20050211
  Serious: Yes (Death)
  Sender: FDA-Public Use
  Company Number: 2004226443JP

PATIENT
  Age: 66 Year
  Sex: Male

DRUGS (15)
  1. CAMPTOSAR [Suspect]
     Indication: COLON CANCER METASTATIC
     Dosage: 200 MG, CYCLIC, IV DRIP
     Route: 041
     Dates: start: 20040708, end: 20040708
  2. BUFFERIN [Concomitant]
  3. ENALAPRIL MALEATE [Concomitant]
  4. NORVASC [Concomitant]
  5. NITROL [Concomitant]
  6. PANALDINE [Concomitant]
  7. ZANTAC [Concomitant]
  8. LAC B (LACTOBACILUS BIFIDUS, LYOPHILIZED) [Concomitant]
  9. BIOFERMIN (BACILLUS SUBTILIS, STREPTOCOCCUS FAECALIS) [Concomitant]
  10. VOLTAREN [Concomitant]
  11. MS CONTIN [Concomitant]
  12. MORPHINE [Concomitant]
  13. PRIMPERAN INJ [Concomitant]
  14. TEGRETOL [Concomitant]
  15. LOPEMIN [Concomitant]

REACTIONS (2)
  - HYPOXIA [None]
  - RESPIRATORY FAILURE [None]
